FAERS Safety Report 8252835-5 (Version None)
Quarter: 2012Q2

REPORT INFORMATION
  Report Type: 
  Country: None (occurrence: None)
  Receive Date: 20120402
  Receipt Date: 20120322
  Transmission Date: 20120825
  Serious: Yes (Other)
  Sender: FDA-Public Use
  Company Number: BR-ABBOTT-12P-020-0915148-00

PATIENT
  Sex: Female
  Weight: 67 kg

DRUGS (3)
  1. HUMIRA [Suspect]
     Indication: RHEUMATOID ARTHRITIS
     Route: 058
     Dates: end: 20111201
  2. METICORTEN [Suspect]
     Indication: RHEUMATOID ARTHRITIS
     Dates: start: 20070101
  3. NIMESULIDE [Concomitant]
     Indication: RHEUMATOID ARTHRITIS
     Dates: start: 20080101

REACTIONS (2)
  - BLOOD GLUCOSE INCREASED [None]
  - ABORTION SPONTANEOUS [None]
